FAERS Safety Report 19074661 (Version 2)
Quarter: 2022Q1

REPORT INFORMATION
  Report Type: Spontaneous
  Country: US (occurrence: None)
  Receive Date: 20210330
  Receipt Date: 20220323
  Transmission Date: 20220423
  Serious: No
  Sender: FDA-Public Use
  Company Number: US-ROCHE-2728830

PATIENT
  Sex: Female

DRUGS (2)
  1. ERIVEDGE [Suspect]
     Active Substance: VISMODEGIB
     Indication: Multiple congenital abnormalities
     Dosage: BY MOUTH
     Route: 048
     Dates: start: 20201113
  2. ERIVEDGE [Suspect]
     Active Substance: VISMODEGIB
     Route: 048
     Dates: start: 202011

REACTIONS (9)
  - Fatigue [Unknown]
  - Headache [Unknown]
  - Muscle spasms [Unknown]
  - Stomatitis [Unknown]
  - Gingival pain [Unknown]
  - Gingival discomfort [Unknown]
  - Off label use [Unknown]
  - Intentional product use issue [Unknown]
  - Mouth ulceration [Unknown]
